FAERS Safety Report 21747135 (Version 1)
Quarter: 2022Q4

REPORT INFORMATION
  Report Type: Report from Study
  Country: US (occurrence: US)
  Receive Date: 20221219
  Receipt Date: 20221219
  Transmission Date: 20230112
  Serious: No
  Sender: FDA-Public Use
  Company Number: US-ABBVIE-4204559

PATIENT
  Sex: Female

DRUGS (2)
  1. HUMIRA [Suspect]
     Active Substance: ADALIMUMAB
     Indication: Hidradenitis
     Dosage: STRENGTH: 40 MG, DRUG END DATE 2022
     Route: 058
     Dates: start: 20221026
  2. HUMIRA [Suspect]
     Active Substance: ADALIMUMAB
     Dosage: START DATE-2022, STRENGTH: 40 MG
     Route: 058

REACTIONS (1)
  - Off label use [Unknown]
